FAERS Safety Report 13111652 (Version 1)
Quarter: 2017Q1

REPORT INFORMATION
  Report Type: Spontaneous
  Country: FR (occurrence: FR)
  Receive Date: 20170112
  Receipt Date: 20170112
  Transmission Date: 20170428
  Serious: Yes (Hospitalization)
  Sender: FDA-Public Use
  Company Number: FR-ROCHE-1878354

PATIENT
  Age: 66 Year
  Sex: Male

DRUGS (1)
  1. AVASTIN [Suspect]
     Active Substance: BEVACIZUMAB
     Indication: SQUAMOUS CELL CARCINOMA OF LUNG
     Route: 042
     Dates: start: 20141201, end: 20160626

REACTIONS (2)
  - Aneurysm repair [Recovered/Resolved with Sequelae]
  - Aneurysm [Recovered/Resolved with Sequelae]

NARRATIVE: CASE EVENT DATE: 20160706
